FAERS Safety Report 5325956-4 (Version None)
Quarter: 2007Q2

REPORT INFORMATION
  Report Type: 
  Country: None (occurrence: None)
  Receive Date: 20070516
  Receipt Date: 20070419
  Transmission Date: 20071010
  Serious: Yes (Life-Threatening, Disabling, Other)
  Sender: FDA-Public Use
  Company Number: A0645020A

PATIENT
  Age: 41 Year
  Sex: Male
  Weight: 77.3 kg

DRUGS (9)
  1. ABACAVIR SULFATE + LAMIVUDINE [Suspect]
     Indication: HIV INFECTION
     Dosage: 1TAB TWICE PER DAY
     Route: 048
     Dates: start: 20070314, end: 20070328
  2. SUSTIVA [Concomitant]
     Indication: HIV INFECTION
     Dosage: 600MG AT NIGHT
     Route: 048
     Dates: start: 20070314
  3. AZITHROMYCIN [Concomitant]
     Dosage: 1200MG WEEKLY
     Route: 048
     Dates: start: 20070301
  4. BACTRIM DS [Concomitant]
     Indication: HIV INFECTION
     Dosage: 1TAB THREE TIMES PER WEEK
     Route: 048
     Dates: start: 20070301
  5. FLUCONAZOLE [Concomitant]
     Dosage: 100MG PER DAY
     Route: 048
     Dates: start: 20070225
  6. METOPROLOL SUCCINATE [Concomitant]
     Indication: HYPERTENSION
     Dosage: 50MG TWICE PER DAY
     Route: 048
     Dates: start: 20070301
  7. ZETIA [Concomitant]
     Indication: BLOOD CHOLESTEROL INCREASED
     Dosage: 10MG PER DAY
     Route: 048
     Dates: start: 20070301
  8. PRILOSEC [Concomitant]
     Dosage: 20MG PER DAY
     Route: 048
     Dates: start: 20070225
  9. ATACAND [Concomitant]
     Indication: HYPERTENSION
     Dosage: 16MG PER DAY
     Route: 048
     Dates: start: 20070301

REACTIONS (2)
  - FATIGUE [None]
  - RASH [None]
